FAERS Safety Report 9644027 (Version 1)
Quarter: 2013Q4

REPORT INFORMATION
  Report Type: Spontaneous
  Country: IT (occurrence: IT)
  Receive Date: 20131024
  Receipt Date: 20131024
  Transmission Date: 20140711
  Serious: Yes (Other)
  Sender: FDA-Public Use
  Company Number: PHHY2013IT117282

PATIENT
  Sex: Male

DRUGS (2)
  1. AMOXICILLIN-CLAVULANIC ACID [Suspect]
     Indication: BRONCHITIS
     Dosage: 875 MG, QD
  2. LOSAZID [Concomitant]

REACTIONS (1)
  - Ageusia [Not Recovered/Not Resolved]
